FAERS Safety Report 9831263 (Version 1)
Quarter: 2014Q1

REPORT INFORMATION
  Report Type: Spontaneous
  Country: IN (occurrence: IN)
  Receive Date: 20140121
  Receipt Date: 20140121
  Transmission Date: 20141002
  Serious: Yes (Hospitalization, Other)
  Sender: FDA-Public Use
  Company Number: IN-009507513-1401IND008829

PATIENT
  Age: 60 Year
  Sex: Male

DRUGS (2)
  1. JANUMET [Suspect]
     Dosage: 2 TABLETS DAILY
     Route: 048
  2. THYRONORM [Concomitant]

REACTIONS (1)
  - Myocardial infarction [Recovered/Resolved]
